FAERS Safety Report 21971027 (Version 1)
Quarter: 2023Q1

REPORT INFORMATION
  Report Type: Spontaneous
  Country: GB (occurrence: GB)
  Receive Date: 20230209
  Receipt Date: 20230209
  Transmission Date: 20230417
  Serious: Yes (Hospitalization)
  Sender: FDA-Public Use
  Company Number: GB-MHRA-TPP15954505C7390698YC1674572600929

PATIENT
  Age: 22 Year
  Sex: Female
  Weight: 47 kg

DRUGS (5)
  1. SUMATRIPTAN [Suspect]
     Active Substance: SUMATRIPTAN
     Indication: Product used for unknown indication
     Dosage: 50 MILLIGRAM
     Route: 065
     Dates: start: 20221117
  2. CLARITHROMYCIN [Concomitant]
     Active Substance: CLARITHROMYCIN
     Indication: Product used for unknown indication
     Dosage: 10 MILLILITER, TWO TIMES A DAY (2X5ML SPOON)
     Route: 065
     Dates: start: 20221025, end: 20221101
  3. BECLOMETHASONE DIPROPIONATE [Concomitant]
     Active Substance: BECLOMETHASONE DIPROPIONATE
     Indication: Product used for unknown indication
     Dosage: 2 DOSAGE FORM, TWO TIMES A DAY (INHALE 2 DOSES TWICE DAILY---- KINDLY BOOK APPO)
     Route: 055
     Dates: start: 20221205, end: 20230124
  4. DUAC [Concomitant]
     Active Substance: BENZOYL PEROXIDE\CLINDAMYCIN PHOSPHATE
     Indication: Product used for unknown indication
     Dosage: 1 DOSAGE FORM, ONCE A DAY APPLY AT NIGHT
     Route: 065
     Dates: start: 20210422
  5. ALBUTEROL [Concomitant]
     Active Substance: ALBUTEROL
     Indication: Product used for unknown indication
     Dosage: INHALE 2 DOSES 2-3 TIMES  OR WHEN NEED IT---- K...
     Route: 055
     Dates: start: 20221205

REACTIONS (3)
  - Nipple pain [Recovered/Resolved]
  - Chest pain [Recovered/Resolved]
  - Axillary pain [Recovered/Resolved]

NARRATIVE: CASE EVENT DATE: 20221117
